FAERS Safety Report 8304331-4 (Version None)
Quarter: 2012Q2

REPORT INFORMATION
  Report Type: 
  Country: None (occurrence: None)
  Receive Date: 20120423
  Receipt Date: 20120423
  Transmission Date: 20120825
  Serious: Yes (Hospitalization)
  Sender: FDA-Public Use
  Company Number: None

PATIENT
  Age: 63 Year
  Sex: Female
  Weight: 65.77 kg

DRUGS (2)
  1. BONIVA [Concomitant]
  2. BONIVA [Suspect]
     Indication: OSTEOPENIA
     Dosage: 150MG
     Route: 048
     Dates: start: 20051120, end: 20110820

REACTIONS (2)
  - LOWER LIMB FRACTURE [None]
  - PATHOLOGICAL FRACTURE [None]
